FAERS Safety Report 8036551-0 (Version None)
Quarter: 2012Q1

REPORT INFORMATION
  Report Type: 
  Country: None (occurrence: None)
  Receive Date: 20120109
  Receipt Date: 20111230
  Transmission Date: 20120608
  Serious: Yes (Hospitalization)
  Sender: FDA-Public Use
  Company Number: DKLU1075743

PATIENT
  Age: 31 Year
  Sex: Female

DRUGS (2)
  1. ONFI (CLOBAZAM) (CLOBAZAM) [Suspect]
     Indication: PRODUCT USED FOR UNKNOWN INDICATION
     Dates: start: 20090101
  2. TRAMADOL HYDROHLORIDE [Suspect]
     Indication: PRODUCT USED FOR UNKNOWN INDICATION
     Dosage: ORAL
     Route: 048
     Dates: start: 20090101

REACTIONS (9)
  - TONIC CLONIC MOVEMENTS [None]
  - WOUND [None]
  - CONVULSION [None]
  - MOVEMENT DISORDER [None]
  - AGGRESSION [None]
  - POOR QUALITY SLEEP [None]
  - BRUXISM [None]
  - SELF-MEDICATION [None]
  - SLEEP TALKING [None]
